FAERS Safety Report 5363641-3 (Version None)
Quarter: 2007Q2

REPORT INFORMATION
  Report Type: 
  Country: None (occurrence: None)
  Receive Date: 20070618
  Receipt Date: 20070618
  Transmission Date: 20071010
  Serious: Yes (Other)
  Sender: FDA-Public Use
  Company Number: None

PATIENT
  Age: 40 Year
  Sex: Female
  Weight: 90.7194 kg

DRUGS (2)
  1. CYMBALTA [Suspect]
     Indication: DEPRESSION
     Dosage: 60 MG ONCE A DAY
     Dates: start: 20061101, end: 20070404
  2. CYMBALTA [Suspect]
     Indication: DEPRESSION
     Dosage: 30 MG ONCE A DAY
     Dates: start: 20070404, end: 20070529

REACTIONS (9)
  - AGITATION [None]
  - CONVERSION DISORDER [None]
  - DEPRESSION [None]
  - DIZZINESS [None]
  - FATIGUE [None]
  - HYPERACUSIS [None]
  - INSOMNIA [None]
  - LOSS OF CONSCIOUSNESS [None]
  - SOCIAL AVOIDANT BEHAVIOUR [None]
